FAERS Safety Report 4917180-1 (Version None)
Quarter: 2006Q1

REPORT INFORMATION
  Report Type: 
  Country: None (occurrence: None)
  Receive Date: 20060221
  Receipt Date: 20060119
  Transmission Date: 20060701
  Serious: Yes (Other)
  Sender: FDA-Public Use
  Company Number: GBWYE315519JAN06

PATIENT
  Sex: Female

DRUGS (13)
  1. ENBREL [Suspect]
     Indication: RHEUMATOID ARTHRITIS
     Dosage: ONE UNSPECIFIED DOSE
     Route: 058
     Dates: start: 20060111, end: 20060111
  2. METHOTREXATE [Concomitant]
  3. PHENYTOIN [Concomitant]
  4. NABUMETONE [Concomitant]
  5. DEFLAZACORT [Concomitant]
  6. SERTRALINE [Concomitant]
  7. CALCIUM CARBONATE [Concomitant]
  8. LANSOPRAZOLE [Concomitant]
  9. CO-CODAMOL [Concomitant]
  10. LOESTRIN 24 [Concomitant]
  11. FOLIC ACID [Concomitant]
  12. AMILORIDE HYDROCHLORIDE [Concomitant]
  13. FUROSEMIDE [Concomitant]

REACTIONS (8)
  - CHEST DISCOMFORT [None]
  - DIARRHOEA [None]
  - HEADACHE [None]
  - HYPERTENSION [None]
  - MALAISE [None]
  - PALLOR [None]
  - PARAESTHESIA [None]
  - VOMITING [None]
